FAERS Safety Report 9120915 (Version 4)
Quarter: 2014Q1

REPORT INFORMATION
  Report Type: Spontaneous
  Country: JP (occurrence: JP)
  Receive Date: 20130226
  Receipt Date: 20140221
  Transmission Date: 20141002
  Serious: Yes (Hospitalization)
  Sender: FDA-Public Use
  Company Number: JP-GLAXOSMITHKLINE-B0866989A

PATIENT
  Age: 50 Year
  Sex: Female

DRUGS (14)
  1. LAMICTAL [Suspect]
     Indication: BIPOLAR I DISORDER
     Dosage: 25MG ALTERNATE DAYS
     Route: 048
     Dates: start: 20121211
  2. LAMICTAL [Suspect]
     Indication: BIPOLAR I DISORDER
     Dosage: 25MG PER DAY
     Route: 048
  3. LAMICTAL [Suspect]
     Indication: BIPOLAR I DISORDER
     Dosage: 50MG PER DAY
     Route: 048
     Dates: end: 20130122
  4. LAMICTAL [Suspect]
     Indication: BIPOLAR I DISORDER
     Dosage: 75MG PER DAY
     Route: 048
     Dates: start: 20130123
  5. DEPAKENE-R [Concomitant]
     Indication: BIPOLAR I DISORDER
     Route: 048
     Dates: start: 201204, end: 201211
  6. DEPAKENE-R [Concomitant]
     Indication: BIPOLAR I DISORDER
     Dosage: 800MG PER DAY
     Route: 048
     Dates: start: 201211
  7. ABILIFY [Concomitant]
     Indication: BIPOLAR I DISORDER
     Dosage: 12MG PER DAY
     Route: 048
     Dates: start: 201207
  8. RIVOTRIL [Concomitant]
     Indication: BIPOLAR I DISORDER
     Route: 048
     Dates: start: 201204
  9. RIVOTRIL [Concomitant]
     Indication: BIPOLAR I DISORDER
     Dosage: .5MG TWICE PER DAY
     Route: 048
  10. LIPITOR [Concomitant]
     Indication: HYPERLIPIDAEMIA
     Route: 048
  11. PARIET [Concomitant]
     Indication: GASTROOESOPHAGEAL REFLUX DISEASE
     Route: 048
  12. MAGLAX [Concomitant]
     Indication: CONSTIPATION
     Route: 048
  13. THYRADIN S [Concomitant]
     Indication: HYPOTHYROIDISM
     Dosage: 100MCG TWO TIMES PER WEEK
     Route: 048
  14. THYRADIN S [Concomitant]
     Indication: HYPOTHYROIDISM
     Dosage: 75MCG FIVE TIMES PER WEEK
     Route: 048

REACTIONS (15)
  - Stevens-Johnson syndrome [Recovering/Resolving]
  - Drug reaction with eosinophilia and systemic symptoms [Unknown]
  - Rash [Unknown]
  - Pyrexia [Unknown]
  - Drug eruption [Unknown]
  - Eye discharge [Unknown]
  - Lip erosion [Unknown]
  - Oral mucosa erosion [Unknown]
  - Stomatitis [Unknown]
  - Glossitis [Unknown]
  - Rash macular [Unknown]
  - Generalised erythema [Unknown]
  - Blister [Unknown]
  - Skin erosion [Unknown]
  - Enanthema [Unknown]
